FAERS Safety Report 5530983-8 (Version None)
Quarter: 2007Q4

REPORT INFORMATION
  Report Type: 
  Country: None (occurrence: None)
  Receive Date: 20071130
  Receipt Date: 20071121
  Transmission Date: 20080405
  Serious: Yes (Hospitalization)
  Sender: FDA-Public Use
  Company Number: NO-WYE-H01370807

PATIENT
  Age: 43 Year
  Sex: Female

DRUGS (3)
  1. PANTOPRAZOLE SODIUM [Suspect]
     Indication: WOUND
  2. METOCLOPRAMIDE [Concomitant]
     Dosage: ^DF^
  3. DACARBAZINE [Concomitant]
     Indication: METASTATIC MALIGNANT MELANOMA
     Dosage: ^DF^
     Route: 042
     Dates: start: 20070101

REACTIONS (6)
  - ABDOMINAL PAIN [None]
  - CONSTIPATION [None]
  - FLATULENCE [None]
  - NAUSEA [None]
  - ORAL INTAKE REDUCED [None]
  - VOMITING [None]
